FAERS Safety Report 15892106 (Version 1)
Quarter: 2019Q1

REPORT INFORMATION
  Report Type: Spontaneous
  Country: DE (occurrence: DE)
  Receive Date: 20190130
  Receipt Date: 20190130
  Transmission Date: 20190417
  Serious: Yes (Hospitalization, Disabling)
  Sender: FDA-Public Use
  Company Number: DE-EXELIXIS-CABO-18012327

PATIENT
  Age: 70 Year
  Sex: Male
  Weight: 88 kg

DRUGS (16)
  1. JANUVIA [Concomitant]
     Active Substance: SITAGLIPTIN PHOSPHATE
  2. IODINE. [Concomitant]
     Active Substance: IODINE
  3. RAMIPRIL. [Concomitant]
     Active Substance: RAMIPRIL
  4. CABOMETYX [Suspect]
     Active Substance: CABOZANTINIB S-MALATE
     Dosage: 30 MG, QD
     Route: 048
     Dates: start: 20180129, end: 20180130
  5. CABOMETYX [Suspect]
     Active Substance: CABOZANTINIB S-MALATE
     Dosage: 60 MG, QD
     Route: 048
     Dates: start: 20180131, end: 20180205
  6. SPASMEX [Concomitant]
  7. AMPHOMORONAL PIPETTE [Concomitant]
  8. CABOMETYX [Suspect]
     Active Substance: CABOZANTINIB S-MALATE
     Dosage: 40 MG, QD
     Route: 048
  9. L-THYROX [Concomitant]
     Active Substance: LEVOTHYROXINE SODIUM
  10. PREDNISOLON [Concomitant]
     Active Substance: PREDNISOLONE
  11. CABOMETYX [Suspect]
     Active Substance: CABOZANTINIB S-MALATE
     Indication: RENAL CELL CARCINOMA
     Dosage: 60 MG, QD
     Route: 048
     Dates: start: 20171222, end: 20180125
  12. PRAMIPEXOLE. [Concomitant]
     Active Substance: PRAMIPEXOLE
  13. GABAPENTIN. [Concomitant]
     Active Substance: GABAPENTIN
  14. TAMSULOSIN [Concomitant]
     Active Substance: TAMSULOSIN
  15. FINASTERIDE. [Concomitant]
     Active Substance: FINASTERIDE
  16. SIMVASTATIN. [Concomitant]
     Active Substance: SIMVASTATIN

REACTIONS (1)
  - Palmar-plantar erythrodysaesthesia syndrome [Recovering/Resolving]

NARRATIVE: CASE EVENT DATE: 20180109
